FAERS Safety Report 24300088 (Version 1)
Quarter: 2024Q3

REPORT INFORMATION
  Report Type: Spontaneous
  Country: US (occurrence: US)
  Receive Date: 20240909
  Receipt Date: 20240909
  Transmission Date: 20241016
  Serious: No
  Sender: DR REDDYS
  Company Number: None

PATIENT
  Age: 6 Decade
  Sex: Female

DRUGS (2)
  1. RIVASTIGMINE [Suspect]
     Active Substance: RIVASTIGMINE
     Indication: Dementia Alzheimer^s type
     Dates: start: 2022, end: 202309
  2. QUETIAPINE [Concomitant]
     Active Substance: QUETIAPINE
     Indication: Dementia Alzheimer^s type

REACTIONS (1)
  - Fatigue [Unknown]

NARRATIVE: CASE EVENT DATE: 20220101
